FAERS Safety Report 6370137-9 (Version None)
Quarter: 2009Q3

REPORT INFORMATION
  Report Type: 
  Country: None (occurrence: None)
  Receive Date: 20090923
  Receipt Date: 20071004
  Transmission Date: 20100115
  Serious: Yes (Other)
  Sender: FDA-Public Use
  Company Number: US-ASTRAZENECA-2006UW22247

PATIENT
  Age: 502 Month
  Sex: Female
  Weight: 74.8 kg

DRUGS (12)
  1. SEROQUEL [Suspect]
     Indication: SLEEP DISORDER
     Route: 048
     Dates: start: 20010101
  2. SEROQUEL [Suspect]
     Indication: NIGHTMARE
     Route: 048
     Dates: start: 20010101
  3. SEROQUEL [Suspect]
     Route: 048
     Dates: start: 20020801, end: 20080219
  4. SEROQUEL [Suspect]
     Route: 048
     Dates: start: 20020801, end: 20080219
  5. METHADONE HCL [Concomitant]
     Dates: start: 20040101
  6. PROZAC [Concomitant]
     Dosage: 20 - 80 MG
     Route: 048
     Dates: start: 20040921
  7. AMBIEN [Concomitant]
     Route: 048
     Dates: start: 20040921
  8. KLONOPIN [Concomitant]
     Indication: ANXIETY
     Dosage: 1 MG TID, 1 MG QID FLUCTUATING
     Route: 048
     Dates: start: 20040518
  9. DIOVAN [Concomitant]
     Dosage: 80 - 160 MG
     Dates: start: 20040921
  10. WELLBUTRIN [Concomitant]
     Indication: SEXUAL DYSFUNCTION
     Dates: start: 20040518
  11. VICODIN [Concomitant]
     Dosage: 7.5 MG 4 HOURLY AS REQUIRED
     Dates: start: 20040921
  12. OXYCONTIN [Concomitant]
     Dosage: 7.5 MG 4 HOURLY AS REQUIRED
     Dates: start: 20040518

REACTIONS (1)
  - PANCREATITIS [None]
